FAERS Safety Report 7069971-1 (Version None)
Quarter: 2010Q4

REPORT INFORMATION
  Report Type: 
  Country: None (occurrence: None)
  Receive Date: 20101028
  Receipt Date: 20100715
  Transmission Date: 20110411
  Serious: No
  Sender: FDA-Public Use
  Company Number: US-WYE-H16591810

PATIENT

DRUGS (3)
  1. CHILDREN'S ADVIL [Suspect]
     Indication: ACCIDENTAL EXPOSURE
  2. EXCEDRIN (MIGRAINE) [Suspect]
     Indication: ACCIDENTAL EXPOSURE
     Dosage: PART OF A TABLET X 1
     Route: 048
  3. CONCENTRATED TYLENOL INFANT DROPS [Suspect]
     Indication: ACCIDENTAL EXPOSURE

REACTIONS (2)
  - ACCIDENTAL DRUG INTAKE BY CHILD [None]
  - ACCIDENTAL OVERDOSE [None]
